FAERS Safety Report 13246949 (Version 7)
Quarter: 2018Q1

REPORT INFORMATION
  Report Type: Report from Study
  Country: US (occurrence: US)
  Receive Date: 20170217
  Receipt Date: 20180216
  Transmission Date: 20180508
  Serious: Yes (Hospitalization)
  Sender: FDA-Public Use
  Company Number: US-ROCHE-1893373

PATIENT
  Age: 54 Year
  Sex: Male
  Weight: 58.5 kg

DRUGS (13)
  1. ONDANSETRON [Concomitant]
     Active Substance: ONDANSETRON
     Indication: NAUSEA
     Route: 065
     Dates: start: 20170127
  2. PERCOCET [Concomitant]
     Active Substance: ACETAMINOPHEN\OXYCODONE HYDROCHLORIDE
     Indication: CANCER PAIN
     Route: 065
     Dates: start: 20170110
  3. MIRTAZAPINE. [Concomitant]
     Active Substance: MIRTAZAPINE
     Indication: DEPRESSION
     Route: 065
     Dates: start: 20170208, end: 20170310
  4. CARBOPLATIN. [Suspect]
     Active Substance: CARBOPLATIN
     Indication: NON-SMALL CELL LUNG CANCER STAGE IV
     Dosage: STANDARD DOSE PER PROTOCOL?CONCENTRATION-TIME CURVE (AUC) OF 6 MG/ML/MIN ?MOST RECENT DOSE OF PRIOR
     Route: 042
     Dates: start: 20170127
  5. PROCHLORPERAZINE. [Concomitant]
     Active Substance: PROCHLORPERAZINE
     Indication: NAUSEA
     Route: 065
     Dates: start: 20170127
  6. ATEZOLIZUMAB. [Suspect]
     Active Substance: ATEZOLIZUMAB
     Indication: NON-SMALL CELL LUNG CANCER STAGE IV
     Dosage: MOST RECENT DOSE OF PRIOR TO AE ONSET: 27/JAN/2017 AT 08:45 HOURS
     Route: 042
     Dates: start: 20170127
  7. KEPPRA [Concomitant]
     Active Substance: LEVETIRACETAM
     Indication: SEIZURE
     Route: 065
     Dates: start: 20170109
  8. COLACE [Concomitant]
     Active Substance: DOCUSATE SODIUM
     Indication: CONSTIPATION
     Route: 065
     Dates: start: 20170119
  9. TESSALON [Concomitant]
     Active Substance: BENZONATATE
     Indication: COUGH
     Route: 065
     Dates: start: 20170202, end: 20170209
  10. CODEINE/GUAIFENESIN [Concomitant]
     Active Substance: CODEINE\GUAIFENESIN
     Indication: COUGH
     Route: 065
     Dates: start: 20170202
  11. NAB-PACLITAXEL [Suspect]
     Active Substance: PACLITAXEL
     Indication: NON-SMALL CELL LUNG CANCER STAGE IV
     Dosage: STANDARD DOSE PER PROTOCOL?MOST RECENT DOSE OF PRIOR TO AE ONSET: 27/JAN/2017 AT 09:49 HOURS  (177.5
     Route: 042
     Dates: start: 20170127
  12. ATIVAN [Concomitant]
     Active Substance: LORAZEPAM
     Indication: ANXIETY
  13. NYSTATIN. [Concomitant]
     Active Substance: NYSTATIN
     Indication: ORAL INFECTION
     Route: 065
     Dates: start: 20170202, end: 20170212

REACTIONS (2)
  - Pericardial effusion [Recovered/Resolved with Sequelae]
  - Cardiac tamponade [Recovered/Resolved with Sequelae]

NARRATIVE: CASE EVENT DATE: 20170203
